FAERS Safety Report 5786070-7 (Version None)
Quarter: 2008Q2

REPORT INFORMATION
  Report Type: 
  Country: None (occurrence: None)
  Receive Date: 20080620
  Receipt Date: 20080620
  Transmission Date: 20081010
  Serious: Yes (Hospitalization)
  Sender: FDA-Public Use
  Company Number: None

PATIENT
  Age: 82 Year
  Sex: Female
  Weight: 52.6173 kg

DRUGS (13)
  1. ERLOTINIB  150 MG [Suspect]
     Indication: NON-SMALL CELL LUNG CANCER
     Dosage: 150 MG DAILY 047
     Dates: start: 20070829, end: 20080528
  2. BEVACIZUMAB 15 MG/KG [Suspect]
     Indication: NON-SMALL CELL LUNG CANCER
     Dosage: 15 MG/KG EVERY 3 WEEKS 041
     Dates: start: 20070829, end: 20080528
  3. XALATAN [Concomitant]
  4. TIMOLOL MALEATE [Concomitant]
  5. EVISTA [Concomitant]
  6. SYNTHROID [Concomitant]
  7. CENTRUM SILVER [Concomitant]
  8. CALTRATE [Concomitant]
  9. VITAMIN [Concomitant]
  10. CETAPHIL LOTION [Concomitant]
  11. VISINE EYE DROPS [Concomitant]
  12. IMODIUM [Concomitant]
  13. TYLENOL [Concomitant]

REACTIONS (1)
  - BREAST PAIN [None]
